FAERS Safety Report 19583836 (Version 5)
Quarter: 2022Q2

REPORT INFORMATION
  Report Type: Spontaneous
  Country: US (occurrence: US)
  Receive Date: 20210720
  Receipt Date: 20220617
  Transmission Date: 20220721
  Serious: Yes (Hospitalization, Other)
  Sender: FDA-Public Use
  Company Number: US-PFIZER INC-2021872458

PATIENT
  Age: 57 Year
  Sex: Female

DRUGS (2)
  1. XELJANZ XR [Suspect]
     Active Substance: TOFACITINIB CITRATE
     Dosage: 11 MG
     Dates: start: 20210602, end: 202106
  2. XELJANZ XR [Suspect]
     Active Substance: TOFACITINIB CITRATE
     Dosage: 11 MG
     Dates: start: 20210621, end: 2021

REACTIONS (7)
  - Tuberculosis [Unknown]
  - Diverticulitis [Unknown]
  - Infection [Unknown]
  - Contusion [Unknown]
  - Alopecia [Unknown]
  - Fatigue [Unknown]
  - Product dose omission issue [Unknown]
